FAERS Safety Report 6988627-4 (Version None)
Quarter: 2010Q3

REPORT INFORMATION
  Report Type: 
  Country: None (occurrence: None)
  Receive Date: 20100916
  Receipt Date: 20100902
  Transmission Date: 20110219
  Serious: Yes (Other)
  Sender: FDA-Public Use
  Company Number: GB-MYLANLABS-2010S1016314

PATIENT
  Age: 73 Year
  Sex: Female
  Weight: 64 kg

DRUGS (2)
  1. CLOMIPRAMINE [Suspect]
     Indication: DEPRESSION
     Dates: start: 20060101
  2. CLOMIPRAMINE [Suspect]
     Indication: OBSESSIVE THOUGHTS
     Dates: start: 20060101

REACTIONS (5)
  - EMOTIONAL DISTRESS [None]
  - HYPERSENSITIVITY [None]
  - SLEEP DISORDER [None]
  - SOFT TISSUE INFLAMMATION [None]
  - SWELLING [None]
